FAERS Safety Report 8262874-6 (Version None)
Quarter: 2012Q2

REPORT INFORMATION
  Report Type: 
  Country: None (occurrence: None)
  Receive Date: 20120405
  Receipt Date: 20120330
  Transmission Date: 20120825
  Serious: Yes (Death, Hospitalization)
  Sender: FDA-Public Use
  Company Number: US-GLAXOSMITHKLINE-A0971634A

PATIENT
  Age: 76 Year
  Sex: Male

DRUGS (8)
  1. METFORMIN HCL [Concomitant]
  2. ATENOLOL [Concomitant]
  3. CRESTOR [Concomitant]
  4. ESCITALOPRAM [Concomitant]
  5. SYNTHROID [Concomitant]
  6. FINASTERIDE [Concomitant]
  7. ARIXTRA [Suspect]
     Indication: DEEP VEIN THROMBOSIS
     Dosage: 115MG PER DAY
     Route: 058
     Dates: start: 20120201, end: 20120301
  8. VITAMIN D [Concomitant]

REACTIONS (1)
  - METASTATIC MALIGNANT MELANOMA [None]
